FAERS Safety Report 22392402 (Version 4)
Quarter: 2023Q2

REPORT INFORMATION
  Report Type: Spontaneous
  Country: US (occurrence: US)
  Receive Date: 20230601
  Receipt Date: 20230609
  Transmission Date: 20230721
  Serious: Yes (Other)
  Sender: FDA-Public Use
  Company Number: US-JNJFOC-20230563632

PATIENT
  Age: 19 Year
  Sex: Female

DRUGS (1)
  1. LISTERINE ANTISEPTIC MOUTHWASH [Suspect]
     Active Substance: EUCALYPTOL\MENTHOL\METHYL SALICYLATE\THYMOL
     Indication: Product used for unknown indication
     Dosage: 1 BOTTLE EVERYDAY
     Route: 048
     Dates: start: 20221025

REACTIONS (2)
  - Drug abuse [Unknown]
  - Aggression [Unknown]

NARRATIVE: CASE EVENT DATE: 20221025
